FAERS Safety Report 14912904 (Version 2)
Quarter: 2018Q2

REPORT INFORMATION
  Report Type: Spontaneous
  Country: US (occurrence: US)
  Receive Date: 20180518
  Receipt Date: 20180604
  Transmission Date: 20180711
  Serious: Yes (Hospitalization, Other)
  Sender: FDA-Public Use
  Company Number: US-APOTEX-2018AP013891

PATIENT
  Age: 21 Year
  Sex: Male

DRUGS (5)
  1. BENZTROPINE. [Suspect]
     Active Substance: BENZTROPINE
     Indication: SCHIZOPHRENIA
     Dosage: 2 MG, TWO TIME PER DAY
     Route: 048
  2. RISPERIDONE. [Suspect]
     Active Substance: RISPERIDONE
     Indication: SCHIZOPHRENIA
     Dosage: 2 MG, MORNING
     Route: 048
  3. RISPERIDONE. [Suspect]
     Active Substance: RISPERIDONE
     Dosage: 3 MG, EVENING
     Route: 048
  4. PALIPERIDONE PALMITATE [Suspect]
     Active Substance: PALIPERIDONE PALMITATE
     Indication: SCHIZOPHRENIA
     Dosage: 234 MG, UNK
     Route: 030
  5. PALIPERIDONE PALMITATE [Suspect]
     Active Substance: PALIPERIDONE PALMITATE
     Dosage: 156 MG, UNK
     Route: 030

REACTIONS (4)
  - Potentiating drug interaction [Recovered/Resolved]
  - Autonomic nervous system imbalance [Recovered/Resolved]
  - Sinus tachycardia [Recovered/Resolved]
  - Condition aggravated [Recovered/Resolved]
